FAERS Safety Report 21619761 (Version 1)
Quarter: 2022Q4

REPORT INFORMATION
  Report Type: Spontaneous
  Country: US (occurrence: None)
  Receive Date: 20221121
  Receipt Date: 20221121
  Transmission Date: 20230113
  Serious: No
  Sender: FDA-Public Use
  Company Number: US-RedHill Biopharma Inc.-RDH202210-000075

PATIENT
  Age: 45 Year
  Sex: Female
  Weight: 37 kg

DRUGS (3)
  1. TALICIA [Suspect]
     Active Substance: AMOXICILLIN\OMEPRAZOLE MAGNESIUM\RIFABUTIN
     Indication: Helicobacter infection
     Dosage: 4 PILLS EVERY 8 HOURS (3 TIMES A DAY)
     Route: 048
     Dates: start: 20220922, end: 20220929
  2. LEVOTHYROXINE [Concomitant]
     Active Substance: LEVOTHYROXINE
     Indication: Hypothyroidism
  3. Lexapram [Concomitant]
     Indication: Anxiety

REACTIONS (4)
  - Rash erythematous [Unknown]
  - Drug hypersensitivity [Unknown]
  - Documented hypersensitivity to administered product [Recovered/Resolved]
  - Contraindicated product prescribed [Recovered/Resolved]

NARRATIVE: CASE EVENT DATE: 20220922
